FAERS Safety Report 7868585-0 (Version None)
Quarter: 2011Q4

REPORT INFORMATION
  Report Type: 
  Country: None (occurrence: None)
  Receive Date: 20111028
  Receipt Date: 20101214
  Transmission Date: 20120403
  Serious: No
  Sender: FDA-Public Use
  Company Number: US-AMGEN-USASP2010008988

PATIENT
  Age: 61 Year
  Sex: Female
  Weight: 79.365 kg

DRUGS (12)
  1. TIKOSYN [Concomitant]
     Dosage: 250 A?G, UNK
  2. CLONAZEPAM [Concomitant]
     Dosage: 0.5 MG, UNK
  3. VITAMIN D [Concomitant]
     Dosage: 2000 IU, UNK
  4. ASPIRIN [Concomitant]
     Dosage: 81 MG, UNK
  5. METHOTREXATE [Concomitant]
     Dosage: 2.5 UNK, UNK
  6. ENBREL [Suspect]
     Indication: PRODUCT USED FOR UNKNOWN INDICATION
     Dosage: 50 MG, QWK
     Route: 058
  7. TEMAZEPAM [Concomitant]
     Dosage: 22.5 MG, UNK
  8. MIRTAZAPINE [Concomitant]
     Dosage: 30 MG, UNK
  9. ZYPREXA [Concomitant]
     Dosage: 2.5 MG, UNK
  10. LAMICTAL [Concomitant]
     Dosage: 25 MG, UNK
  11. FOLIC ACID [Concomitant]
     Dosage: 1 MG, UNK
  12. NEXIUM [Concomitant]
     Dosage: 40 MG, UNK

REACTIONS (2)
  - EAR DISCOMFORT [None]
  - SINUS DISORDER [None]
